FAERS Safety Report 18464596 (Version 1)
Quarter: 2020Q4

REPORT INFORMATION
  Report Type: Report from Study
  Country: US (occurrence: US)
  Receive Date: 20201104
  Receipt Date: 20201104
  Transmission Date: 20210114
  Serious: No
  Sender: FDA-Public Use
  Company Number: US-INCYTE CORPORATION-2020IN009386

PATIENT

DRUGS (1)
  1. JAKAFI [Suspect]
     Active Substance: RUXOLITINIB
     Indication: MYELOFIBROSIS
     Dosage: 5 MILLIGRAM, BID
     Route: 048

REACTIONS (5)
  - Weight decreased [Recovering/Resolving]
  - Decreased activity [Unknown]
  - Scratch [Unknown]
  - Asthenia [Recovering/Resolving]
  - Wound haemorrhage [Recovered/Resolved]
